FAERS Safety Report 17284914 (Version 2)
Quarter: 2020Q1

REPORT INFORMATION
  Report Type: Report from Study
  Country: US (occurrence: US)
  Receive Date: 20200117
  Receipt Date: 20200207
  Transmission Date: 20200409
  Serious: Yes (Death, Hospitalization)
  Sender: FDA-Public Use
  Company Number: US-ACTELION-A-NJ2020-200549

PATIENT
  Age: 69 Year
  Sex: Female

DRUGS (3)
  1. OXYGEN. [Concomitant]
     Active Substance: OXYGEN
     Dosage: 5 L
  2. LANTUS [Concomitant]
     Active Substance: INSULIN GLARGINE
  3. OPSUMIT [Suspect]
     Active Substance: MACITENTAN
     Indication: PULMONARY ARTERIAL HYPERTENSION
     Dosage: 10 MG
     Route: 048

REACTIONS (20)
  - Right ventricular systolic pressure increased [Unknown]
  - Oxygen saturation decreased [Unknown]
  - Hypoxia [Unknown]
  - Troponin increased [Unknown]
  - Fluid overload [Unknown]
  - Acute kidney injury [Unknown]
  - Dyspnoea [Unknown]
  - Respiratory failure [Unknown]
  - Left ventricular failure [Unknown]
  - Pulmonary oedema [Unknown]
  - Pleural effusion [Unknown]
  - Death [Fatal]
  - Hypertension [Unknown]
  - Cardiomegaly [Unknown]
  - Encephalopathy [Unknown]
  - Pulmonary hypertension [Unknown]
  - Hypothyroidism [Unknown]
  - Pulmonary artery dilatation [Unknown]
  - Lymphadenopathy mediastinal [Unknown]
  - Glycosylated haemoglobin increased [Unknown]

NARRATIVE: CASE EVENT DATE: 20191226
